FAERS Safety Report 13579864 (Version 1)
Quarter: 2017Q2

REPORT INFORMATION
  Report Type: Spontaneous
  Country: US (occurrence: US)
  Receive Date: 20170525
  Receipt Date: 20170525
  Transmission Date: 20170830
  Serious: Yes (Hospitalization)
  Sender: FDA-Public Use
  Company Number: US-JNJFOC-20170519874

PATIENT
  Age: 65 Year
  Sex: Female
  Weight: 58.97 kg

DRUGS (4)
  1. FENTANYL. [Suspect]
     Active Substance: FENTANYL
     Indication: BACK PAIN
     Route: 062
     Dates: start: 2014
  2. LYRICA [Concomitant]
     Active Substance: PREGABALIN
     Indication: PAIN
     Dosage: ONE OR TWO DAILY
     Route: 048
     Dates: start: 2008
  3. SYNTHROID [Concomitant]
     Active Substance: LEVOTHYROXINE SODIUM
     Indication: THYROID DISORDER
     Route: 048
     Dates: start: 2002
  4. HYDROCODONE [Concomitant]
     Active Substance: HYDROCODONE
     Indication: PAIN
     Dosage: 10/325 CAPSULE ONCE OR TWICE A DAY.
     Route: 048
     Dates: start: 2006

REACTIONS (7)
  - Drug dose omission [Unknown]
  - Hypertension [Not Recovered/Not Resolved]
  - Pancreatitis chronic [Recovered/Resolved]
  - Feeling of body temperature change [Recovered/Resolved]
  - Hypersomnia [Recovered/Resolved]
  - Palpitations [Recovered/Resolved]
  - Abdominal pain upper [Recovered/Resolved]

NARRATIVE: CASE EVENT DATE: 2017
